FAERS Safety Report 8459894-5 (Version None)
Quarter: 2012Q2

REPORT INFORMATION
  Report Type: 
  Country: None (occurrence: None)
  Receive Date: 20120622
  Receipt Date: 20120615
  Transmission Date: 20120825
  Serious: Yes (Hospitalization, Other)
  Sender: FDA-Public Use
  Company Number: PHHY2012BR052527

PATIENT
  Age: 80 Year
  Sex: Female

DRUGS (2)
  1. RASILEZ [Suspect]
     Indication: HYPERTENSION
     Dosage: 1 DF, A DAY
  2. AMLODIPINE [Suspect]
     Indication: HYPERTENSION
     Dosage: 1 DF (320 MG VALSAR AND 10 MG AMLO), A DAY

REACTIONS (7)
  - LOSS OF CONSCIOUSNESS [None]
  - HAEMORRHAGIC STROKE [None]
  - FALL [None]
  - PARALYSIS [None]
  - CEREBRAL THROMBOSIS [None]
  - HYPOKINESIA [None]
  - BLOOD CHOLESTEROL ABNORMAL [None]
